FAERS Safety Report 8150506-7 (Version None)
Quarter: 2012Q1

REPORT INFORMATION
  Report Type: 
  Country: None (occurrence: None)
  Receive Date: 20120220
  Receipt Date: 20120213
  Transmission Date: 20120608
  Serious: Yes (Other)
  Sender: FDA-Public Use
  Company Number: BR-BAYER-2012-002089

PATIENT
  Age: 57 Year
  Sex: Male
  Weight: 82.54 kg

DRUGS (5)
  1. NEXAVAR [Suspect]
     Indication: HEPATIC NEOPLASM MALIGNANT
     Dosage: 400 MG, BID
     Route: 048
     Dates: start: 20111201
  2. NEXAVAR [Suspect]
     Dosage: 200 MG, BID
     Route: 048
     Dates: start: 20111201
  3. GLICLAZIDE [Concomitant]
     Indication: DIABETES MELLITUS
     Dosage: 1 DF, QD
     Route: 048
     Dates: start: 20110401
  4. NAPRIX D [Concomitant]
     Indication: HYPERTENSION
     Dosage: 1 DF, QD
     Route: 048
     Dates: start: 20110401
  5. NEXAVAR [Suspect]
     Dosage: 400 MG, BID
     Route: 048
     Dates: start: 20111201

REACTIONS (11)
  - AMNESIA [None]
  - HALLUCINATION, VISUAL [None]
  - NAUSEA [None]
  - PLATELET COUNT DECREASED [None]
  - RETCHING [None]
  - COORDINATION ABNORMAL [None]
  - MOBILITY DECREASED [None]
  - DECREASED APPETITE [None]
  - DIARRHOEA [None]
  - ABDOMINAL DISTENSION [None]
  - GINGIVAL BLEEDING [None]
